FAERS Safety Report 6596188-7 (Version None)
Quarter: 2010Q1

REPORT INFORMATION
  Report Type: 
  Country: None (occurrence: None)
  Receive Date: 20100223
  Receipt Date: 20100210
  Transmission Date: 20100710
  Serious: Yes (Other)
  Sender: FDA-Public Use
  Company Number: US-ELI_LILLY_AND_COMPANY-US201002002833

PATIENT
  Sex: Female
  Weight: 69.388 kg

DRUGS (7)
  1. BYETTA [Suspect]
     Dosage: 5 UG, 2/D
     Route: 058
  2. BYETTA [Suspect]
     Dosage: 10 UG, 2/D
     Route: 058
  3. BYETTA [Suspect]
     Dosage: 5 UG, 2/D
     Route: 058
     Dates: start: 20090901
  4. GLUCOPHAGE [Concomitant]
     Dosage: UNK, UNKNOWN
     Route: 065
  5. CHANTIX                            /05703001/ [Concomitant]
     Dosage: UNK, UNKNOWN
     Route: 065
  6. THIAZIDE DERIVATIVES [Concomitant]
     Dosage: UNK, UNKNOWN
     Route: 065
  7. PRAVACHOL [Concomitant]
     Dosage: UNK, UNKNOWN
     Route: 065

REACTIONS (2)
  - BREAST CANCER STAGE I [None]
  - WEIGHT DECREASED [None]
